FAERS Safety Report 23404120 (Version 2)
Quarter: 2024Q3

REPORT INFORMATION
  Report Type: Report from Study
  Country: CA (occurrence: CA)
  Receive Date: 20240116
  Receipt Date: 20240717
  Transmission Date: 20241017
  Serious: No
  Sender: ROCHE
  Company Number: CA-ROCHE-3492086

PATIENT
  Sex: Male

DRUGS (1)
  1. OCREVUS [Suspect]
     Active Substance: OCRELIZUMAB
     Indication: Primary progressive multiple sclerosis
     Dosage: 300 AT DAY 0 AND 14, THEN 600 MG EVERY 6 MONTH
     Route: 042
     Dates: start: 20180803

REACTIONS (1)
  - COVID-19 [Unknown]
